FAERS Safety Report 25188774 (Version 4)
Quarter: 2025Q2

REPORT INFORMATION
  Report Type: Spontaneous
  Country: US (occurrence: US)
  Receive Date: 20250411
  Receipt Date: 20250605
  Transmission Date: 20250717
  Serious: No
  Sender: UNITED THERAPEUTICS
  Company Number: US-UNITED THERAPEUTICS-UNT-2025-010934

PATIENT
  Age: 24 Year
  Sex: Female
  Weight: 126.08 kg

DRUGS (21)
  1. REMODULIN [Suspect]
     Active Substance: TREPROSTINIL
     Indication: Pulmonary arterial hypertension
  2. REMODULIN [Suspect]
     Active Substance: TREPROSTINIL
     Indication: Pulmonary hypoplasia
  3. REMODULIN [Suspect]
     Active Substance: TREPROSTINIL
     Indication: Bronchopulmonary dysplasia
  4. REMODULIN [Suspect]
     Active Substance: TREPROSTINIL
     Indication: Pulmonary arterial hypertension
  5. REMODULIN [Suspect]
     Active Substance: TREPROSTINIL
     Indication: Pulmonary hypoplasia
  6. REMODULIN [Suspect]
     Active Substance: TREPROSTINIL
     Indication: Bronchopulmonary dysplasia
  7. ORENITRAM [Suspect]
     Active Substance: TREPROSTINIL
     Indication: Pulmonary arterial hypertension
     Dosage: 1.125 MG, TID
     Dates: start: 202505
  8. ORENITRAM [Suspect]
     Active Substance: TREPROSTINIL
     Indication: Pulmonary hypoplasia
  9. ORENITRAM [Suspect]
     Active Substance: TREPROSTINIL
     Indication: Bronchopulmonary dysplasia
  10. ORENITRAM [Suspect]
     Active Substance: TREPROSTINIL
     Indication: Pulmonary arterial hypertension
  11. ORENITRAM [Suspect]
     Active Substance: TREPROSTINIL
     Indication: Pulmonary hypoplasia
  12. ORENITRAM [Suspect]
     Active Substance: TREPROSTINIL
     Indication: Bronchopulmonary dysplasia
  13. ORENITRAM [Suspect]
     Active Substance: TREPROSTINIL
     Indication: Pulmonary arterial hypertension
  14. ORENITRAM [Suspect]
     Active Substance: TREPROSTINIL
     Indication: Pulmonary hypoplasia
  15. ORENITRAM [Suspect]
     Active Substance: TREPROSTINIL
     Indication: Bronchopulmonary dysplasia
  16. MACITENTAN\TADALAFIL [Suspect]
     Active Substance: MACITENTAN\TADALAFIL
     Indication: Product used for unknown indication
  17. ADVAIR HFA [Concomitant]
     Active Substance: FLUTICASONE PROPIONATE\SALMETEROL XINAFOATE
     Indication: Product used for unknown indication
  18. VENTOLIN HFA [Concomitant]
     Active Substance: ALBUTEROL SULFATE
     Indication: Product used for unknown indication
  19. OXYGEN [Concomitant]
     Active Substance: OXYGEN
     Indication: Product used for unknown indication
  20. SODIUM CHLORIDE [Concomitant]
     Active Substance: SODIUM CHLORIDE
     Indication: Product used for unknown indication
  21. SOTATERCEPT [Concomitant]
     Active Substance: SOTATERCEPT
     Indication: Product used for unknown indication

REACTIONS (10)
  - Pulmonary hypoplasia [Unknown]
  - Bronchopulmonary dysplasia [Unknown]
  - Urticaria [Recovered/Resolved]
  - Skin irritation [Not Recovered/Not Resolved]
  - Infusion site pain [Unknown]
  - Infusion site irritation [Unknown]
  - Device maintenance issue [Not Recovered/Not Resolved]
  - Off label use [Unknown]
  - Headache [Unknown]
  - Abdominal discomfort [Unknown]

NARRATIVE: CASE EVENT DATE: 20240913
